FAERS Safety Report 5220643-5 (Version None)
Quarter: 2007Q1

REPORT INFORMATION
  Report Type: 
  Country: None (occurrence: None)
  Receive Date: 20070125
  Receipt Date: 20070125
  Transmission Date: 20070707
  Serious: Yes (Hospitalization)
  Sender: FDA-Public Use
  Company Number: None

PATIENT
  Sex: Male
  Weight: 111.1313 kg

DRUGS (9)
  1. COUMADIN [Suspect]
     Indication: ATRIAL FIBRILLATION
     Dosage: PO
     Route: 048
  2. COREG [Concomitant]
  3. ATACAND HCT [Concomitant]
  4. FOLGARD [Concomitant]
  5. LIPITOR [Concomitant]
  6. SPIRONOLACTONE [Concomitant]
  7. ALLEGRA [Concomitant]
  8. CELEBREX [Concomitant]
  9. GLUCOSAMINE [Concomitant]

REACTIONS (2)
  - EPISTAXIS [None]
  - RECTAL HAEMORRHAGE [None]
